FAERS Safety Report 8509134 (Version 2)
Quarter: 2014Q1

REPORT INFORMATION
  Report Type: Spontaneous
  Country: US (occurrence: US)
  Receive Date: 20120412
  Receipt Date: 20140123
  Transmission Date: 20141002
  Serious: Yes (Hospitalization)
  Sender: FDA-Public Use
  Company Number: US-ASTRAZENECA-2011SE24059

PATIENT
  Age: 53 Year
  Sex: Male
  Weight: 104.3 kg

DRUGS (4)
  1. NEXIUM [Suspect]
     Indication: ULCER HAEMORRHAGE
     Route: 048
     Dates: start: 2010, end: 20140101
  2. ZANTAC [Concomitant]
     Indication: BURNING SENSATION
     Route: 048
     Dates: start: 201401
  3. KEPPRA [Concomitant]
     Indication: CONVULSION
     Route: 048
  4. CARVEDILOL [Concomitant]
     Indication: BLOOD PRESSURE ABNORMAL
     Dosage: BID
     Route: 048

REACTIONS (14)
  - Blood sodium abnormal [Unknown]
  - Abdominal distension [Unknown]
  - Dehydration [Unknown]
  - Dyspepsia [Unknown]
  - Electrolyte imbalance [Unknown]
  - Condition aggravated [Unknown]
  - Ulcer haemorrhage [Not Recovered/Not Resolved]
  - Eating disorder [Unknown]
  - Abdominal discomfort [Unknown]
  - Diarrhoea [Unknown]
  - Hyponatraemia [Unknown]
  - Vomiting [Unknown]
  - Intentional drug misuse [Unknown]
  - Drug dose omission [Unknown]
